FAERS Safety Report 8013448-3 (Version None)
Quarter: 2011Q4

REPORT INFORMATION
  Report Type: 
  Country: None (occurrence: None)
  Receive Date: 20111229
  Receipt Date: 20111222
  Transmission Date: 20120403
  Serious: Yes (Other)
  Sender: FDA-Public Use
  Company Number: JP-PFIZER INC-2011310864

PATIENT
  Age: 33 Year
  Sex: Female

DRUGS (1)
  1. CORTRIL [Suspect]
     Dosage: 10 MG, UNK
     Route: 048

REACTIONS (1)
  - UVEITIS [None]
